FAERS Safety Report 4285659-4 (Version None)
Quarter: 2004Q1

REPORT INFORMATION
  Report Type: 
  Country: None (occurrence: None)
  Receive Date: 20040202
  Receipt Date: 20040123
  Transmission Date: 20041129
  Serious: Yes (Hospitalization, Other)
  Sender: FDA-Public Use
  Company Number: 2004004869

PATIENT
  Age: 13 Year
  Sex: Male

DRUGS (1)
  1. UNASYN [Suspect]
     Indication: APPENDICECTOMY
     Dosage: 4 GRAM (QID), INTRAVENOUS
     Route: 042
     Dates: start: 20040101, end: 20040101

REACTIONS (2)
  - ESCHERICHIA INFECTION [None]
  - POSTOPERATIVE INFECTION [None]
